FAERS Safety Report 4530496-6 (Version None)
Quarter: 2004Q4

REPORT INFORMATION
  Report Type: 
  Country: None (occurrence: None)
  Receive Date: 20041216
  Receipt Date: 20041209
  Transmission Date: 20050328
  Serious: Yes (Hospitalization, Other)
  Sender: FDA-Public Use
  Company Number: PTWYE273810DEC04

PATIENT
  Sex: Female

DRUGS (2)
  1. EFEXOR XR (VELAFAXINE HYDROCHLORIDE, CAPSULE, EXTENDED RELEASE, 0) [Suspect]
     Dosage: 75 MG 1X PER 1 DAY
     Route: 048
  2. ALPRAZOLAM [Concomitant]

REACTIONS (7)
  - ANXIETY [None]
  - BALANCE DISORDER [None]
  - EXTRAPYRAMIDAL DISORDER [None]
  - HEADACHE [None]
  - HYPERHIDROSIS [None]
  - PANIC DISORDER [None]
  - TACHYARRHYTHMIA [None]
